FAERS Safety Report 10768328 (Version 2)
Quarter: 2015Q1

REPORT INFORMATION
  Report Type: Spontaneous
  Country: US (occurrence: US)
  Receive Date: 20150206
  Receipt Date: 20150310
  Transmission Date: 20150721
  Serious: Yes (Hospitalization)
  Sender: FDA-Public Use
  Company Number: US-009507513-1501USA011456

PATIENT
  Age: 61 Year
  Sex: Female

DRUGS (3)
  1. RABEPRAZOLE SODIUM. [Suspect]
     Active Substance: RABEPRAZOLE SODIUM
     Indication: GASTRITIS
     Dosage: 20 MG, QD
  2. RANITIDINE [Concomitant]
     Active Substance: RANITIDINE\RANITIDINE HYDROCHLORIDE
     Indication: GASTRITIS
     Dosage: 20 MG, QD
  3. PRILOSEC [Suspect]
     Active Substance: OMEPRAZOLE MAGNESIUM
     Indication: GASTRITIS
     Dosage: 40 MG, QD
     Route: 048

REACTIONS (1)
  - Drug-induced liver injury [Recovering/Resolving]
